FAERS Safety Report 9391484 (Version 1)
Quarter: 2013Q3

REPORT INFORMATION
  Report Type: Spontaneous
  Country: US (occurrence: None)
  Receive Date: 20130705
  Receipt Date: 20130705
  Transmission Date: 20140515
  Serious: Yes (Other)
  Sender: FDA-Public Use
  Company Number: ADR-2013-01104

PATIENT
  Age: 40 Year
  Sex: Female

DRUGS (3)
  1. BACLOFEN [Suspect]
  2. VALIUM (DIAZEPAM) [Suspect]
  3. PLASMA [Concomitant]

REACTIONS (2)
  - Fatigue [None]
  - Sedation [None]
